FAERS Safety Report 22040220 (Version 3)
Quarter: 2025Q4

REPORT INFORMATION
  Report Type: Spontaneous
  Country: US (occurrence: US)
  Receive Date: 20230227
  Receipt Date: 20251117
  Transmission Date: 20260117
  Serious: Yes (Disabling)
  Sender: PFIZER
  Company Number: US-PFIZER INC-202200574595

PATIENT
  Age: 60 Year
  Sex: Female

DRUGS (1)
  1. IBRANCE [Suspect]
     Active Substance: PALBOCICLIB
     Indication: Breast cancer female
     Dosage: 125 MG

REACTIONS (4)
  - Fatigue [Unknown]
  - Brain fog [Unknown]
  - Nausea [Unknown]
  - Eating disorder [Unknown]

NARRATIVE: CASE EVENT DATE: 20230101
